FAERS Safety Report 8829068 (Version 2)
Quarter: 2014Q3

REPORT INFORMATION
  Report Type: Report from Study
  Country: US (occurrence: US)
  Receive Date: 20121008
  Receipt Date: 20140903
  Transmission Date: 20150326
  Serious: Yes (Hospitalization, Other)
  Sender: FDA-Public Use
  Company Number: US-ROCHE-1131123

PATIENT
  Sex: Female

DRUGS (3)
  1. RITUXAN [Suspect]
     Active Substance: RITUXIMAB
     Indication: IMMUNE THROMBOCYTOPENIC PURPURA
     Route: 042
     Dates: start: 20011217
  2. KEFLEX [Concomitant]
     Active Substance: CEPHALEXIN
  3. RITUXAN [Suspect]
     Active Substance: RITUXIMAB
     Indication: THROMBOCYTOPENIA

REACTIONS (8)
  - Petechiae [Unknown]
  - Arthralgia [Unknown]
  - Joint swelling [Unknown]
  - Pyrexia [Unknown]
  - Haematoma [Unknown]
  - Osteomyelitis [Unknown]
  - Off label use [Unknown]
  - Vaginal haemorrhage [Unknown]
